FAERS Safety Report 17052113 (Version 5)
Quarter: 2020Q2

REPORT INFORMATION
  Report Type: Spontaneous
  Country: US (occurrence: US)
  Receive Date: 20191120
  Receipt Date: 20200410
  Transmission Date: 20200713
  Serious: Yes (Other)
  Sender: FDA-Public Use
  Company Number: US-BAYER-2019-207045

PATIENT
  Age: 33 Year
  Sex: Male

DRUGS (5)
  1. KOVALTRY [Suspect]
     Active Substance: ANTIHEMOPHILIC FACTOR, HUMAN RECOMBINANT
     Dosage: 1804 IU
     Route: 042
  2. KOVALTRY [Suspect]
     Active Substance: ANTIHEMOPHILIC FACTOR, HUMAN RECOMBINANT
     Dosage: BLEEDS WERE TREATED 1 MAJOR AND 2 SMALL DOSE LAST WEEK
     Dates: start: 2020, end: 202002
  3. KOVALTRY [Suspect]
     Active Substance: ANTIHEMOPHILIC FACTOR, HUMAN RECOMBINANT
     Dosage: 1 MAJOR DOSE FOR STRAINED BACK
     Dates: start: 2020, end: 2020
  4. KOVALTRY [Suspect]
     Active Substance: ANTIHEMOPHILIC FACTOR, HUMAN RECOMBINANT
     Dosage: 3609 IU
     Route: 042
  5. KOVALTRY [Suspect]
     Active Substance: ANTIHEMOPHILIC FACTOR, HUMAN RECOMBINANT
     Dosage: 3 DOSES TO TREAT WRIST HAEMARTHROSIS, 4 DOSES TO TREAT HIP HEMARTHROSIS AND 4 DOSES TO TREAT ELBOW H
     Route: 042
     Dates: start: 201911, end: 201911

REACTIONS (8)
  - Muscle strain [Recovered/Resolved]
  - Accident [Recovered/Resolved]
  - Haemarthrosis [Recovered/Resolved]
  - Accident [Recovered/Resolved]
  - Skin haemorrhage [Recovered/Resolved]
  - Muscle strain [Recovered/Resolved]
  - Traumatic haemorrhage [Recovered/Resolved]
  - Head injury [Recovered/Resolved]

NARRATIVE: CASE EVENT DATE: 201911
